FAERS Safety Report 13868869 (Version 4)
Quarter: 2018Q3

REPORT INFORMATION
  Report Type: Report from Study
  Country: FR (occurrence: FR)
  Receive Date: 20170815
  Receipt Date: 20180723
  Transmission Date: 20181010
  Serious: Yes (Hospitalization)
  Sender: FDA-Public Use
  Company Number: FR-ROCHE-1976307

PATIENT
  Age: 69 Year
  Sex: Female

DRUGS (13)
  1. BEVACIZUMAB. [Suspect]
     Active Substance: BEVACIZUMAB
     Indication: OVARIAN CANCER
     Dosage: LAST DOSE OF BEVACIZUMAB BEFORE THE EVENT 18/JUL/2017 (15MG/KG, D1)?LAST DOSE OF BEVACIZUMAB BEFORE
     Route: 042
     Dates: start: 20170718, end: 20171009
  2. GEMCITABINE [Suspect]
     Active Substance: GEMCITABINE\GEMCITABINE HYDROCHLORIDE
     Indication: OVARIAN CANCER
     Dosage: LAST DOSE OF GEMCITABINE BEFORE THE EVENT 24/JUL/2017 ?LAST DOSE OF GEMCITABINE BEFORE THE EVENT 28/
     Route: 042
     Dates: start: 20170718, end: 20170807
  3. GEMCITABINE [Suspect]
     Active Substance: GEMCITABINE\GEMCITABINE HYDROCHLORIDE
     Route: 042
     Dates: start: 20170828, end: 20170904
  4. LERCANIDIPINE [Concomitant]
     Active Substance: LERCANIDIPINE
  5. ATEZOLIZUMAB. [Suspect]
     Active Substance: ATEZOLIZUMAB
     Indication: OVARIAN CANCER
     Dosage: LAST DOSE OF BLINDED ATEZOLIZUMAB BEFORE THE EVENT 18/JUL/2017
     Route: 042
     Dates: start: 20170718
  6. BEVACIZUMAB. [Suspect]
     Active Substance: BEVACIZUMAB
     Route: 042
     Dates: start: 20171030, end: 20180104
  7. LODOZ [Concomitant]
     Active Substance: BISOPROLOL FUMARATE\HYDROCHLOROTHIAZIDE
     Dosage: 5/6.25
     Route: 065
  8. CARBOPLATIN. [Suspect]
     Active Substance: CARBOPLATIN
     Indication: OVARIAN CANCER
     Dosage: LAST DOSE OF CARBOPLATIN BEFORE THE EVENT 18/JUL/2017?LAST DOSE OF CARBOPLATIN BEFORE THE EVENT 11/D
     Route: 042
     Dates: start: 20170718, end: 20170807
  9. CARBOPLATIN. [Suspect]
     Active Substance: CARBOPLATIN
     Route: 042
     Dates: start: 20170828, end: 20171009
  10. CARBOPLATIN. [Suspect]
     Active Substance: CARBOPLATIN
     Route: 042
     Dates: start: 20171030, end: 20180104
  11. PARACETAMOL [Concomitant]
     Active Substance: ACETAMINOPHEN
  12. BEVACIZUMAB. [Suspect]
     Active Substance: BEVACIZUMAB
     Route: 042
     Dates: start: 20180115
  13. CARBOPLATIN. [Suspect]
     Active Substance: CARBOPLATIN
     Route: 042
     Dates: start: 20180115

REACTIONS (3)
  - Pancytopenia [Recovered/Resolved]
  - Pancytopenia [Recovered/Resolved]
  - Thrombocytopenia [Recovered/Resolved]

NARRATIVE: CASE EVENT DATE: 20170731
